FAERS Safety Report 15530406 (Version 2)
Quarter: 2018Q4

REPORT INFORMATION
  Report Type: Report from Study
  Country: US (occurrence: US)
  Receive Date: 20181018
  Receipt Date: 20181024
  Transmission Date: 20190205
  Serious: Yes (Disabling)
  Sender: FDA-Public Use
  Company Number: US-GILEAD-2018-0369054

PATIENT
  Age: 10 Year
  Sex: Female

DRUGS (1)
  1. AZTREONAM LYSINE [Suspect]
     Active Substance: AZTREONAM LYSINE
     Indication: CYSTIC FIBROSIS
     Dosage: 75 MG, INH, QD FOR 28D ON AND 28D OFF
     Route: 055
     Dates: start: 20180317

REACTIONS (2)
  - Dysphonia [Unknown]
  - Off label use [Not Recovered/Not Resolved]
